FAERS Safety Report 12463481 (Version 1)
Quarter: 2016Q2

REPORT INFORMATION
  Report Type: Spontaneous
  Country: US (occurrence: US)
  Receive Date: 20160614
  Receipt Date: 20160614
  Transmission Date: 20160815
  Serious: Yes (Hospitalization, Other)
  Sender: FDA-Public Use
  Company Number: US-APOTEX-2016AP008908

PATIENT
  Age: 28 Year
  Sex: Female

DRUGS (6)
  1. CIMETIDINE TABLETS USP [Suspect]
     Active Substance: CIMETIDINE
     Indication: DRUG ABUSE
     Dosage: 200 MG TABLETS, 10 TABLETS DAILY
     Route: 048
  2. CIMETIDINE TABLETS USP [Suspect]
     Active Substance: CIMETIDINE
     Indication: DRUG WITHDRAWAL SYNDROME
  3. MORPHINE [Concomitant]
     Active Substance: MORPHINE
     Indication: PRODUCT USED FOR UNKNOWN INDICATION
     Dosage: UNK
     Route: 065
  4. LOPERAMIDE [Suspect]
     Active Substance: LOPERAMIDE
     Indication: DRUG WITHDRAWAL SYNDROME
     Dosage: APPROXIMATELY 100 TABLETS DAILY DURING FIRST HOSPITALISATION
  5. GABAPENTIN. [Concomitant]
     Active Substance: GABAPENTIN
     Indication: PRODUCT USED FOR UNKNOWN INDICATION
     Dosage: UNK
     Route: 065
  6. LOPERAMIDE [Suspect]
     Active Substance: LOPERAMIDE
     Indication: DRUG ABUSE
     Dosage: 400-600 MG DAILY
     Route: 048

REACTIONS (12)
  - Electrocardiogram QRS complex prolonged [Recovered/Resolved]
  - Electrocardiogram T wave inversion [Recovered/Resolved]
  - Myoclonus [Recovered/Resolved]
  - Ventricular arrhythmia [Recovered/Resolved]
  - Overdose [Recovered/Resolved]
  - Syncope [Recovered/Resolved]
  - Atrioventricular block first degree [Recovered/Resolved]
  - Sinus bradycardia [Recovered/Resolved]
  - Electrocardiogram QT prolonged [Recovered/Resolved]
  - Torsade de pointes [Recovered/Resolved]
  - Drug abuse [Recovered/Resolved]
  - Electrocardiogram T wave amplitude decreased [Recovered/Resolved]
